FAERS Safety Report 4621799-5 (Version None)
Quarter: 2005Q1

REPORT INFORMATION
  Report Type: 
  Country: None (occurrence: None)
  Receive Date: 20050329
  Receipt Date: 20041123
  Transmission Date: 20050727
  Serious: No
  Sender: FDA-Public Use
  Company Number: US-MERCK-0411USA03700

PATIENT
  Age: 65 Year
  Sex: Male

DRUGS (7)
  1. VIOXX [Suspect]
     Indication: ARTHRITIS
     Route: 048
     Dates: start: 20010901, end: 20020208
  2. VIOXX [Suspect]
     Route: 048
     Dates: start: 20040101, end: 20041001
  3. VIOXX [Suspect]
     Route: 048
     Dates: start: 20020208
  4. VIOXX [Suspect]
     Indication: BACK PAIN
     Route: 048
     Dates: start: 20010901, end: 20020208
  5. VIOXX [Suspect]
     Route: 048
     Dates: start: 20040101, end: 20041001
  6. VIOXX [Suspect]
     Route: 048
     Dates: start: 20020208
  7. [THERAPY UNSPECIFIED] [Concomitant]
     Route: 065

REACTIONS (11)
  - ABNORMAL FAECES [None]
  - ASTHMA [None]
  - BLOOD PRESSURE ABNORMAL [None]
  - DENTAL OPERATION [None]
  - DYSGRAPHIA [None]
  - FAECES DISCOLOURED [None]
  - LOCAL SWELLING [None]
  - OEDEMA PERIPHERAL [None]
  - SOMNOLENCE [None]
  - TOOTH DISORDER [None]
  - WEIGHT INCREASED [None]
